FAERS Safety Report 15120346 (Version 4)
Quarter: 2018Q4

REPORT INFORMATION
  Report Type: Report from Study
  Country: US (occurrence: US)
  Receive Date: 20180709
  Receipt Date: 20181009
  Transmission Date: 20190204
  Serious: Yes (Other)
  Sender: FDA-Public Use
  Company Number: US-PFIZER INC-2018163689

PATIENT
  Age: 61 Year
  Sex: Female

DRUGS (6)
  1. IBRANCE [Suspect]
     Active Substance: PALBOCICLIB
     Dosage: 125 MG, CYCLIC (21 DAYS AND 7 DAYS OFF)
     Route: 048
     Dates: start: 20180801
  2. IBRANCE [Suspect]
     Active Substance: PALBOCICLIB
     Indication: BREAST CANCER
     Dosage: 125 MG, DAILY
     Route: 048
     Dates: start: 20180410, end: 20180511
  3. IBRANCE [Suspect]
     Active Substance: PALBOCICLIB
     Dosage: 125 MG, CYCLIC (DAILY FOR 21 DAYS AND 7 DAYS OFF)
     Route: 048
     Dates: start: 20180625, end: 20180716
  4. IBRANCE [Suspect]
     Active Substance: PALBOCICLIB
     Dosage: 125 MG, CYCLIC (DAILY FOR 21 DAYS AND 7 DAYS OFF)
     Route: 048
     Dates: start: 20180522, end: 20180618
  5. IBRANCE [Suspect]
     Active Substance: PALBOCICLIB
     Dosage: 100 MG, CYCLIC (DAILY FOR 21 DAYS AND 7 DAYS OFF)
     Route: 048
     Dates: start: 20180915
  6. FEMARA [Suspect]
     Active Substance: LETROZOLE
     Dosage: UNK, DAILY
     Route: 048

REACTIONS (6)
  - Bone marrow failure [Not Recovered/Not Resolved]
  - Nausea [Recovering/Resolving]
  - Alopecia [Not Recovered/Not Resolved]
  - Fatigue [Recovering/Resolving]
  - Leukopenia [Unknown]
  - Constipation [Unknown]

NARRATIVE: CASE EVENT DATE: 2018
